FAERS Safety Report 9554319 (Version 2)
Quarter: 2013Q3

REPORT INFORMATION
  Report Type: Spontaneous
  Country: DE (occurrence: DE)
  Receive Date: 20130925
  Receipt Date: 20130925
  Transmission Date: 20140515
  Serious: Yes (Disabling)
  Sender: FDA-Public Use
  Company Number: DE-PFIZER INC-2013237235

PATIENT
  Age: 43 Year
  Sex: Male

DRUGS (1)
  1. RAMILICH [Suspect]
     Indication: HYPERTENSION
     Dosage: 5 MG, TWICE A DAY
     Route: 065
     Dates: start: 20130320, end: 20130515

REACTIONS (5)
  - Bone pain [Recovered/Resolved]
  - Tenderness [Recovered/Resolved]
  - Oedema mucosal [Recovered/Resolved]
  - Arthralgia [Recovered/Resolved]
  - Sensation of heaviness [Recovered/Resolved]
